FAERS Safety Report 24152801 (Version 1)
Quarter: 2024Q3

REPORT INFORMATION
  Report Type: Spontaneous
  Country: IN (occurrence: IN)
  Receive Date: 20240730
  Receipt Date: 20240730
  Transmission Date: 20241017
  Serious: Yes (Other)
  Sender: PFIZER
  Company Number: IN-PFIZER INC-PV202300085239

PATIENT
  Age: 65 Year
  Sex: Female

DRUGS (5)
  1. PALBOCICLIB [Suspect]
     Active Substance: PALBOCICLIB
     Dosage: 100 MG, 1X/DAY (D1-D2; ONE WEEK OFF)
     Route: 048
  2. LETROZOLE [Concomitant]
     Active Substance: LETROZOLE
     Dosage: 2.5 MG, 1X/DAY
  3. CCM [CALCIUM CARBONATE] [Concomitant]
     Dosage: UNK, 2X/DAY (TWICE DAILY IN FASTING)
  4. VITAMIN D NOS [Concomitant]
     Active Substance: CHOLECALCIFEROL\ERGOCALCIFEROL
     Dosage: UNK, ONCE MONTHLY
  5. ZOLASTA [Concomitant]
     Dosage: 4 MG, EVERY 3 MONTHS
     Route: 042

REACTIONS (2)
  - Cataract [Unknown]
  - Product dose omission in error [Unknown]
